FAERS Safety Report 6313564-8 (Version None)
Quarter: 2009Q3

REPORT INFORMATION
  Report Type: 
  Country: None (occurrence: None)
  Receive Date: 20090818
  Receipt Date: 20090806
  Transmission Date: 20100115
  Serious: Yes (Hospitalization)
  Sender: FDA-Public Use
  Company Number: JP-SANOFI-SYNTHELABO-A01200907456

PATIENT
  Age: 74 Year
  Sex: Male
  Weight: 61 kg

DRUGS (8)
  1. AVISHOT [Concomitant]
     Indication: DRUG USE FOR UNKNOWN INDICATION
     Dosage: UNK
     Route: 048
     Dates: start: 20050101, end: 20090708
  2. ALLEGRA [Concomitant]
     Indication: RHINITIS
     Route: 048
     Dates: start: 20090603, end: 20090617
  3. AMLODIPINE [Concomitant]
     Indication: HYPERTENSION
     Route: 048
     Dates: start: 20090603, end: 20090708
  4. EURODIN [Concomitant]
     Indication: INSOMNIA
     Route: 048
     Dates: start: 20090603, end: 20090708
  5. PERSELIN [Concomitant]
     Indication: BENIGN PROSTATIC HYPERPLASIA
     Route: 048
     Dates: start: 20090116, end: 20090708
  6. EVIPROSTAT [Concomitant]
     Indication: BENIGN PROSTATIC HYPERPLASIA
     Route: 048
     Dates: start: 20090408, end: 20090708
  7. MICARDIS [Concomitant]
     Indication: HYPERTENSION
     Route: 048
     Dates: start: 20050101, end: 20090708
  8. PLAVIX [Suspect]
     Indication: CEREBRAL INFARCTION
     Route: 048
     Dates: start: 20090606, end: 20090608

REACTIONS (7)
  - HEPATITIS ACUTE [None]
  - HYPERHIDROSIS [None]
  - JAUNDICE [None]
  - LYMPHADENOPATHY [None]
  - PALPITATIONS [None]
  - PYREXIA [None]
  - SPLENOMEGALY [None]
